FAERS Safety Report 7625862 (Version 3)
Quarter: 2013Q1

REPORT INFORMATION
  Report Type: Spontaneous
  Country: CO (occurrence: None)
  Receive Date: 20100924
  Receipt Date: 20120926
  Transmission Date: 20140127
  Serious: Yes (Hospitalization, Disabling, Other)
  Sender: FDA-Public Use
  Company Number: DSU-2010-04799

PATIENT
  Age: 77 Year
  Sex: Female

DRUGS (7)
  1. HYDROCHLOROTHIAZIDE\OLMESARTAN MEDOXOMIL [Suspect]
     Indication: HYPERTENSION
     Route: 048
     Dates: start: 2006
  2. ENBREL [Suspect]
     Indication: ARTHRITIS
     Route: 048
     Dates: start: 200910, end: 200912
  3. VASOTON /00014302/ [Suspect]
     Indication: VARICOSE VEIN
     Route: 048
     Dates: start: 201007, end: 201007
  4. METHOTREXATE [Suspect]
     Indication: ARTHRITIS
     Dosage: PER ORAL
     Route: 048
     Dates: start: 2000, end: 200910
  5. PREDNISOLONE (PREDNISOLONE) (TABLET) (PREDNISOLONE) [Concomitant]
  6. RANITIDINE [Concomitant]
  7. OMEPRAZOLE [Concomitant]

REACTIONS (14)
  - Gastritis [None]
  - Inflammation [None]
  - Arthritis [None]
  - Condition aggravated [None]
  - Therapy cessation [None]
  - Urinary tract infection [None]
  - Transaminases abnormal [None]
  - Gait disturbance [None]
  - Varicose vein [None]
  - Blood pressure increased [None]
  - Headache [None]
  - Feeling of despair [None]
  - Drug ineffective [None]
  - Arthritis [None]
